FAERS Safety Report 9887874 (Version 1)
Quarter: 2013Q4

REPORT INFORMATION
  Report Type: Spontaneous
  Country: US (occurrence: None)
  Receive Date: 20131223
  Receipt Date: 20131223
  Transmission Date: 20140711
  Serious: Yes (Other)
  Sender: FDA-Public Use
  Company Number: 221143LEO

PATIENT
  Sex: Female

DRUGS (2)
  1. PICATO (0.015%, GEL) [Suspect]
     Indication: HEAVY EXPOSURE TO ULTRAVIOLET LIGHT
     Route: 061
     Dates: start: 20130331, end: 20130402
  2. PICATO (0.015%, GEL) [Suspect]
     Indication: SKIN DISORDER
     Route: 061
     Dates: start: 20130331, end: 20130402

REACTIONS (4)
  - Application site inflammation [None]
  - Application site pain [None]
  - Application site exfoliation [None]
  - Drug administration error [None]
